FAERS Safety Report 12924862 (Version 1)
Quarter: 2016Q4

REPORT INFORMATION
  Report Type: Spontaneous
  Country: DE (occurrence: DE)
  Receive Date: 20161109
  Receipt Date: 20161109
  Transmission Date: 20170207
  Serious: Yes (Hospitalization, Other)
  Sender: FDA-Public Use
  Company Number: DE-009507513-1610DEU005512

PATIENT
  Age: 69 Year
  Sex: Male
  Weight: 120 kg

DRUGS (14)
  1. BISO HENNIG [Concomitant]
     Indication: HYPERTENSION
     Dosage: 10 MG, QD
     Route: 048
  2. KALINOR RETARD P [Concomitant]
     Active Substance: POTASSIUM CHLORIDE
     Indication: HYPOKALAEMIA
     Dosage: 600 MG, BID
     Route: 048
  3. IBUPROFEN. [Concomitant]
     Active Substance: IBUPROFEN
     Dosage: 800 MG, QAM
  4. PANTOPRAZOLE [Concomitant]
     Active Substance: PANTOPRAZOLE SODIUM
     Indication: HIATUS HERNIA
     Dosage: 40 MG, QPM
  5. TORASEMID HEXAL [Concomitant]
     Indication: CARDIAC FAILURE
     Dosage: 10 MG, QD (HALF TABLET TWICE A DAY)
     Route: 048
  6. TAMSULOSIN HYDROCHLORIDE. [Concomitant]
     Active Substance: TAMSULOSIN HYDROCHLORIDE
     Indication: BENIGN PROSTATIC HYPERPLASIA
     Dosage: UNK
  7. VALSARTAN COMP CT [Concomitant]
     Active Substance: HYDROCHLOROTHIAZIDE\VALSARTAN
     Indication: HYPERTENSION
     Dosage: 160/12.5 MG, QD
     Route: 048
  8. ADENURIC [Concomitant]
     Active Substance: FEBUXOSTAT
     Indication: HYPERURICAEMIA
     Dosage: 120 MG, QAM
  9. LANTUS [Concomitant]
     Active Substance: INSULIN GLARGINE
     Indication: TYPE 2 DIABETES MELLITUS
     Dosage: UNKNOWN DOSE, EVENINGS
  10. JARDIANCE [Suspect]
     Active Substance: EMPAGLIFLOZIN
     Indication: TYPE 2 DIABETES MELLITUS
     Dosage: UNK
     Dates: start: 20160414, end: 20160912
  11. JANUVIA [Suspect]
     Active Substance: SITAGLIPTIN PHOSPHATE
     Indication: TYPE 2 DIABETES MELLITUS
     Dosage: UNK
     Route: 048
     Dates: start: 20160414, end: 20160912
  12. METFORMIN [Concomitant]
     Active Substance: METFORMIN HYDROCHLORIDE
     Indication: TYPE 2 DIABETES MELLITUS
     Dosage: 500 MG, BID (HALF A TABLET TWICE A DAY)
     Route: 048
     Dates: start: 201512
  13. ULTIBRO BREEZEHALER [Concomitant]
     Dosage: 1 DF, QAM; STRENGTH REPORTED AS ^58MICOGRAM/43^
  14. NOVORAPID [Concomitant]
     Active Substance: INSULIN ASPART
     Dosage: UNK

REACTIONS (14)
  - Osteoarthritis [Recovering/Resolving]
  - White blood cell count increased [Recovered/Resolved]
  - Liver injury [Unknown]
  - Arthralgia [Not Recovered/Not Resolved]
  - Glycosylated haemoglobin increased [Unknown]
  - Colon adenoma [Unknown]
  - Blood urea increased [Unknown]
  - Blood ketone body decreased [Unknown]
  - C-reactive protein increased [Unknown]
  - Glucose urine present [Unknown]
  - Diverticulum intestinal [Unknown]
  - Monocyte percentage increased [Unknown]
  - Haematocrit decreased [Unknown]
  - Glomerular filtration rate decreased [Unknown]

NARRATIVE: CASE EVENT DATE: 20160708
